FAERS Safety Report 12029288 (Version 4)
Quarter: 2016Q2

REPORT INFORMATION
  Report Type: Report from Study
  Country: US (occurrence: US)
  Receive Date: 20160207
  Receipt Date: 20160603
  Transmission Date: 20160815
  Serious: Yes (Hospitalization, Other)
  Sender: FDA-Public Use
  Company Number: US-ABBVIE-15K-163-1496504-00

PATIENT
  Sex: Female
  Weight: 57.66 kg

DRUGS (6)
  1. HUMIRA [Suspect]
     Active Substance: ADALIMUMAB
     Route: 058
  2. PREDNISONE. [Suspect]
     Active Substance: PREDNISONE
     Indication: PRODUCT USED FOR UNKNOWN INDICATION
     Route: 065
  3. ATENOLOL HYDROCHLORIDE [Concomitant]
     Active Substance: ATENOLOL HYDROCHLORIDE
     Indication: PRODUCT USED FOR UNKNOWN INDICATION
  4. HUMIRA [Suspect]
     Active Substance: ADALIMUMAB
     Route: 058
     Dates: start: 2015, end: 201512
  5. HUMIRA [Suspect]
     Active Substance: ADALIMUMAB
     Indication: CROHN^S DISEASE
     Route: 058
     Dates: start: 2010, end: 2013
  6. HUMIRA [Suspect]
     Active Substance: ADALIMUMAB
     Route: 058
     Dates: start: 20131001, end: 201511

REACTIONS (15)
  - Pulmonary mass [Unknown]
  - Visual field defect [Not Recovered/Not Resolved]
  - Joint swelling [Unknown]
  - Oligodendroglioma [Not Recovered/Not Resolved]
  - Anxiety [Unknown]
  - Depression [Unknown]
  - Arthritis [Not Recovered/Not Resolved]
  - Pruritus [Unknown]
  - Peripheral swelling [Recovered/Resolved]
  - Blister [Unknown]
  - Seizure [Recovered/Resolved]
  - Feeling abnormal [Unknown]
  - Diabetes mellitus [Unknown]
  - Gait disturbance [Recovered/Resolved]
  - Biliary tract disorder [Unknown]

NARRATIVE: CASE EVENT DATE: 2010
